FAERS Safety Report 7408253 (Version 3)
Quarter: 2012Q4

REPORT INFORMATION
  Report Type: 
  Country: JP (occurrence: JP)
  Receive Date: 20100603
  Receipt Date: 20121212
  Transmission Date: 20130627
  Serious: Yes (Other)
  Sender: FDA-Public Use
  Company Number: PHHY2009JP33795

PATIENT
  Age: 57 Year
  Sex: Female

DRUGS (3)
  1. GLIVEC [Suspect]
     Indication: CHRONIC MYELOID LEUKAEMIA
     Dosage: 400 mg per day
     Route: 048
     Dates: start: 2004
  2. GLIVEC [Suspect]
     Dosage: UNK
     Route: 048
     Dates: start: 200902, end: 200906
  3. GLIVEC [Suspect]
     Dosage: 200 mg, daily
     Route: 048
     Dates: start: 20090316, end: 20090626

REACTIONS (7)
  - Lung adenocarcinoma [Not Recovered/Not Resolved]
  - Second primary malignancy [Unknown]
  - Pleural effusion [Recovered/Resolved]
  - Fluid retention [Recovered/Resolved]
  - Chest pain [Unknown]
  - Cough [Unknown]
  - Rash [Recovering/Resolving]
